FAERS Safety Report 9871987 (Version 1)
Quarter: 2014Q1

REPORT INFORMATION
  Report Type: Spontaneous
  Country: US (occurrence: US)
  Receive Date: 20140205
  Receipt Date: 20140205
  Transmission Date: 20141002
  Serious: No
  Sender: FDA-Public Use
  Company Number: US-ALLERGAN-1304725US

PATIENT
  Sex: Female

DRUGS (4)
  1. BOTOX [Suspect]
     Indication: SKIN WRINKLING
     Dosage: UNK, SINGLE
     Route: 030
     Dates: start: 20121113, end: 20121113
  2. BOTOX [Suspect]
     Dosage: UNK, SINGLE
     Route: 030
     Dates: start: 20121126, end: 20121126
  3. BOTOX [Suspect]
     Dosage: UNK, SINGLE
     Route: 030
     Dates: start: 20130226, end: 20130226
  4. BOTOX [Suspect]
     Dosage: UNK, SINGLE
     Route: 030
     Dates: start: 20130312, end: 20130312

REACTIONS (1)
  - Drug ineffective [Unknown]
